FAERS Safety Report 6007382-8 (Version None)
Quarter: 2008Q4

REPORT INFORMATION
  Report Type: 
  Country: None (occurrence: None)
  Receive Date: 20081217
  Receipt Date: 20080319
  Transmission Date: 20090506
  Serious: No
  Sender: FDA-Public Use
  Company Number: US-ASTRAZENECA-2008UW05638

PATIENT
  Age: 59 Year
  Sex: Male
  Weight: 140.6 kg

DRUGS (5)
  1. CRESTOR [Suspect]
     Indication: BLOOD CHOLESTEROL
     Route: 048
     Dates: start: 20080201
  2. METFORMIN HCL [Concomitant]
  3. RAMIPRIL [Concomitant]
  4. GLIMEPIRIDE [Concomitant]
  5. COLCHICINE [Concomitant]

REACTIONS (1)
  - GOUT [None]
